FAERS Safety Report 5635962-8 (Version None)
Quarter: 2008Q1

REPORT INFORMATION
  Report Type: 
  Country: None (occurrence: None)
  Receive Date: 20080224
  Receipt Date: 20080218
  Transmission Date: 20080703
  Serious: Yes (Life-Threatening, Hospitalization, Other)
  Sender: FDA-Public Use
  Company Number: PHHY2008CL01881

PATIENT
  Age: 70 Year
  Sex: Male

DRUGS (3)
  1. TAREG [Suspect]
     Indication: HYPERTENSION
     Dosage: 160 MG, UNK
     Route: 048
     Dates: start: 20071201
  2. ANALGESICS [Concomitant]
  3. ANTIEPILEPTICS [Concomitant]

REACTIONS (5)
  - BRAIN SCAN ABNORMAL [None]
  - DEPRESSED MOOD [None]
  - DIZZINESS [None]
  - SKULL FRACTURE [None]
  - THROMBOSIS [None]
